FAERS Safety Report 4454043-2 (Version None)
Quarter: 2004Q3

REPORT INFORMATION
  Report Type: 
  Country: None (occurrence: None)
  Receive Date: 20040920
  Receipt Date: 20030716
  Transmission Date: 20050211
  Serious: Yes (Death)
  Sender: FDA-Public Use
  Company Number: PHBS2003KR14633

PATIENT
  Age: 48 Year
  Sex: Female

DRUGS (4)
  1. FEMARA [Suspect]
     Indication: BREAST CANCER
     Dosage: 2.5 MG/DAY
     Route: 048
     Dates: start: 20000620
  2. TAMOXIFEN CITRATE [Concomitant]
     Dosage: 20 MG/DAY
     Dates: start: 20000620
  3. EPIRUBICIN [Concomitant]
     Dates: start: 20000330, end: 20000921
  4. VINORELBINE TARTRATE [Concomitant]
     Dates: start: 20000330, end: 20000921

REACTIONS (1)
  - DEATH [None]
